FAERS Safety Report 16895164 (Version 1)
Quarter: 2019Q4

REPORT INFORMATION
  Report Type: Spontaneous
  Country: GB (occurrence: GB)
  Receive Date: 20191008
  Receipt Date: 20191008
  Transmission Date: 20200122
  Serious: Yes (Death, Life-Threatening, Other)
  Sender: FDA-Public Use
  Company Number: GB-AMGEN-GBRSP2019163646

PATIENT

DRUGS (2)
  1. CARFILZOMIB [Suspect]
     Active Substance: CARFILZOMIB
     Indication: PLASMA CELL MYELOMA
     Dosage: UNK
     Route: 065
  2. DEXAMETHASONE. [Suspect]
     Active Substance: DEXAMETHASONE
     Indication: PLASMA CELL MYELOMA
     Dosage: UNK
     Route: 065

REACTIONS (22)
  - Left ventricular failure [Unknown]
  - Cardiac failure [Unknown]
  - Oedema peripheral [Unknown]
  - Chest pain [Unknown]
  - Thrombocytopenia [Unknown]
  - Dyspnoea [Unknown]
  - Hypertension [Unknown]
  - Nausea [Unknown]
  - Skin ulcer [Unknown]
  - Pulmonary embolism [Unknown]
  - Cataract [Unknown]
  - Neuropathy peripheral [Unknown]
  - Vomiting [Unknown]
  - Disease progression [Fatal]
  - Infection [Unknown]
  - Neoplasm malignant [Fatal]
  - Neutropenia [Unknown]
  - Hypoacusis [Unknown]
  - Insomnia [Unknown]
  - Anaemia [Unknown]
  - Deep vein thrombosis [Unknown]
  - Fatigue [Unknown]
